FAERS Safety Report 9191001 (Version 1)
Quarter: 2013Q1

REPORT INFORMATION
  Report Type: Spontaneous
  Country: US (occurrence: US)
  Receive Date: 20130326
  Receipt Date: 20130326
  Transmission Date: 20140127
  Serious: No
  Sender: FDA-Public Use
  Company Number: US-TEVA-393964USA

PATIENT
  Sex: Female

DRUGS (7)
  1. PROAIR HFA [Suspect]
     Indication: DYSPNOEA
     Dosage: 90 MCG BID PRN
  2. DULERA [Concomitant]
  3. SPIRIVA [Concomitant]
  4. ARMOUR THYROID [Concomitant]
  5. METFORMIN [Concomitant]
  6. SIMVASTATIN [Concomitant]
  7. DALIRESP [Concomitant]

REACTIONS (1)
  - Dry mouth [Not Recovered/Not Resolved]
